FAERS Safety Report 5712310-6 (Version None)
Quarter: 2008Q2

REPORT INFORMATION
  Report Type: 
  Country: None (occurrence: None)
  Receive Date: 20080421
  Receipt Date: 20080421
  Transmission Date: 20081010
  Serious: No
  Sender: FDA-Public Use
  Company Number: None

PATIENT
  Sex: Female
  Weight: 58.514 kg

DRUGS (1)
  1. ACTONEL [Suspect]
     Dosage: 1 TABLET WEEKLY PO
     Route: 048
     Dates: start: 20050101, end: 20080201

REACTIONS (1)
  - TOOTH LOSS [None]
